FAERS Safety Report 14498425 (Version 8)
Quarter: 2018Q3

REPORT INFORMATION
  Report Type: Spontaneous
  Country: CA (occurrence: CA)
  Receive Date: 20180207
  Receipt Date: 20180925
  Transmission Date: 20181010
  Serious: Yes (Hospitalization, Other)
  Sender: FDA-Public Use
  Company Number: CA-CELLTRION INC.-2017CA017696

PATIENT

DRUGS (9)
  1. INFLECTRA [Suspect]
     Active Substance: INFLIXIMAB-DYYB
     Dosage: 245 MG, CYCLIC EVERY 8 WEEKS, 6 WEEKS, THEN EVERY 8 WEEKS
     Route: 042
     Dates: start: 20180322
  2. INFLECTRA [Suspect]
     Active Substance: INFLIXIMAB-DYYB
     Indication: COLITIS ULCERATIVE
     Dosage: 245 MG, CYCLIC EVERY 2 WEEKS, 6 WEEKS, THEN EVERY 8 WEEKS
     Route: 042
     Dates: start: 20171216, end: 20180126
  3. INFLECTRA [Suspect]
     Active Substance: INFLIXIMAB-DYYB
     Dosage: 5 MG/KG, CYCLIC (EVERY 8     WEEKS)
     Route: 042
     Dates: start: 20180802
  4. INFLECTRA [Suspect]
     Active Substance: INFLIXIMAB-DYYB
     Dosage: 5 MG/KG, 6 WEEKS AFTER LAST INFUSION
     Route: 042
     Dates: start: 20180622
  5. INFLECTRA [Suspect]
     Active Substance: INFLIXIMAB-DYYB
     Dosage: 245 MG, CYCLIC EVERY 8 WEEKS, 6 WEEKS, THEN EVERY 8 WEEKS
     Route: 042
     Dates: start: 20180322
  6. CORTISONE [Concomitant]
     Active Substance: CORTISONE\HYDROCORTISONE
     Dosage: UNK
     Dates: start: 20171122
  7. INFLECTRA [Suspect]
     Active Substance: INFLIXIMAB-DYYB
     Dosage: 450MG; INTRAVENOUS
     Route: 042
     Dates: start: 20180509, end: 20180509
  8. MEZAVANT [Concomitant]
     Active Substance: MESALAMINE
     Dosage: UNK
     Dates: start: 20171122
  9. IRON [Concomitant]
     Active Substance: IRON
     Dosage: UNK
     Dates: start: 20180504

REACTIONS (9)
  - Condition aggravated [Not Recovered/Not Resolved]
  - Cushingoid [Unknown]
  - Weight increased [Unknown]
  - Body temperature increased [Recovered/Resolved]
  - Hyperphagia [Unknown]
  - Herpes zoster [Not Recovered/Not Resolved]
  - Product use issue [Unknown]
  - Heart rate increased [Recovered/Resolved]
  - Blood pressure abnormal [Recovered/Resolved]

NARRATIVE: CASE EVENT DATE: 20171229
